FAERS Safety Report 15562531 (Version 1)
Quarter: 2018Q4

REPORT INFORMATION
  Report Type: Spontaneous
  Country: US (occurrence: US)
  Receive Date: 20181029
  Receipt Date: 20181029
  Transmission Date: 20190205
  Serious: No
  Sender: FDA-Public Use
  Company Number: US-BAUSCH-BL-2018-024393

PATIENT
  Sex: Male

DRUGS (2)
  1. DICLOFENAC SODIUM ER [Suspect]
     Active Substance: DICLOFENAC SODIUM
     Indication: PRODUCT USED FOR UNKNOWN INDICATION
     Dosage: HAD BEEN USING PRODUCT FOR APPROXIMATELY 8 YEARS
     Route: 065
     Dates: start: 2010
  2. CIPRO [Suspect]
     Active Substance: CIPROFLOXACIN HYDROCHLORIDE
     Indication: CYSTITIS
     Route: 065

REACTIONS (1)
  - Drug effect decreased [Not Recovered/Not Resolved]
